FAERS Safety Report 25660669 (Version 1)
Quarter: 2025Q3

REPORT INFORMATION
  Report Type: Spontaneous
  Country: JP (occurrence: JP)
  Receive Date: 20250808
  Receipt Date: 20250808
  Transmission Date: 20251020
  Serious: Yes (Hospitalization)
  Sender: SUNOVION
  Company Number: JP-SMPA-2025SMP007274

PATIENT
  Age: 25 Year
  Sex: Male

DRUGS (15)
  1. LATUDA [Suspect]
     Active Substance: LURASIDONE HYDROCHLORIDE
     Indication: Product used for unknown indication
     Route: 048
  2. BLONANSERIN [Suspect]
     Active Substance: BLONANSERIN
     Indication: Product used for unknown indication
     Dosage: 40 MG, QD
     Route: 062
     Dates: start: 20240718
  3. BLONANSERIN [Suspect]
     Active Substance: BLONANSERIN
     Dosage: 80 MG, QD
     Route: 062
     Dates: start: 202502
  4. PALIPERIDONE PALMITATE [Suspect]
     Active Substance: PALIPERIDONE PALMITATE
     Indication: Schizophrenia
     Route: 030
  5. PALIPERIDONE PALMITATE [Suspect]
     Active Substance: PALIPERIDONE PALMITATE
     Route: 030
  6. PALIPERIDONE PALMITATE [Suspect]
     Active Substance: PALIPERIDONE PALMITATE
     Route: 030
  7. PALIPERIDONE PALMITATE [Suspect]
     Active Substance: PALIPERIDONE PALMITATE
     Route: 030
  8. QUETIAPINE FUMARATE [Concomitant]
     Active Substance: QUETIAPINE FUMARATE
     Dosage: 250 MG, QD
     Dates: start: 20240628
  9. QUETIAPINE FUMARATE [Concomitant]
     Active Substance: QUETIAPINE FUMARATE
     Dosage: 50 MG, QD
  10. QUETIAPINE FUMARATE [Concomitant]
     Active Substance: QUETIAPINE FUMARATE
  11. QUETIAPINE FUMARATE [Concomitant]
     Active Substance: QUETIAPINE FUMARATE
     Dosage: 125 MG, QD
     Dates: start: 202502
  12. REXULTI [Concomitant]
     Active Substance: BREXPIPRAZOLE
  13. INVEGA [Concomitant]
     Active Substance: PALIPERIDONE
     Dosage: 6 MG, QD
     Dates: start: 20241112
  14. ZYPREXA [Concomitant]
     Active Substance: OLANZAPINE
     Route: 030
  15. ASENAPINE MALEATE [Concomitant]
     Active Substance: ASENAPINE MALEATE
     Dates: start: 202502

REACTIONS (5)
  - Abnormal behaviour [Unknown]
  - Somnolence [Unknown]
  - Therapeutic response decreased [Unknown]
  - Blood prolactin increased [Not Recovered/Not Resolved]
  - Inappropriate schedule of product administration [Unknown]

NARRATIVE: CASE EVENT DATE: 20250221
